FAERS Safety Report 4653117-0 (Version None)
Quarter: 2005Q2

REPORT INFORMATION
  Report Type: 
  Country: None (occurrence: None)
  Receive Date: 20050503
  Receipt Date: 20050406
  Transmission Date: 20051028
  Serious: Yes (Other)
  Sender: FDA-Public Use
  Company Number: 2003180184US

PATIENT
  Age: 64 Year
  Sex: Female
  Weight: 63.5036 kg

DRUGS (9)
  1. PROVERA [Suspect]
     Indication: HORMONE REPLACEMENT THERAPY
     Dosage: ORAL
     Route: 048
     Dates: start: 19840101, end: 19860101
  2. PROVELLA-14 (ESTROGENS CONJUGATED, MEDROXYPROGESTERONE ACETATE) [Suspect]
     Indication: HORMONE REPLACEMENT THERAPY
     Dosage: ORAL
     Route: 048
     Dates: start: 19960101, end: 20010101
  3. CONJUGATED ESTROGENS [Suspect]
     Indication: HORMONE REPLACEMENT THERAPY
     Dosage: ORAL
     Route: 048
     Dates: start: 19840101, end: 19960101
  4. FLUOXETINE HCL [Concomitant]
  5. AMLODIPINE BESYLATE [Concomitant]
  6. FLUOXETINE [Concomitant]
  7. AMITRIPTYLINE HCL [Concomitant]
  8. GUAIFENESIN (GUAIFENESIN) [Concomitant]
  9. ROFECOXIB [Concomitant]

REACTIONS (1)
  - BREAST CANCER FEMALE [None]
